FAERS Safety Report 19450506 (Version 1)
Quarter: 2021Q2

REPORT INFORMATION
  Report Type: Spontaneous
  Country: CA (occurrence: CA)
  Receive Date: 20210622
  Receipt Date: 20210622
  Transmission Date: 20210717
  Serious: Yes (Other)
  Sender: FDA-Public Use
  Company Number: CA-PFIZER INC-2019194463

PATIENT
  Age: 63 Year
  Sex: Male
  Weight: 84 kg

DRUGS (4)
  1. XELJANZ [Suspect]
     Active Substance: TOFACITINIB CITRATE
     Dosage: 5 MG, 2X/DAY
     Route: 048
     Dates: start: 2018, end: 2019
  2. XELJANZ [Suspect]
     Active Substance: TOFACITINIB CITRATE
     Indication: RHEUMATOID ARTHRITIS
     Dosage: 5 MG, 2X/DAY
     Route: 048
     Dates: start: 20190130, end: 20190424
  3. METHOTREXATE. [Concomitant]
     Active Substance: METHOTREXATE
     Indication: RHEUMATOID ARTHRITIS
     Dosage: 25 MG, WEEKLY
     Route: 058
     Dates: start: 201712
  4. TYLENOL [Concomitant]
     Active Substance: ACETAMINOPHEN
     Indication: RHEUMATOID ARTHRITIS
     Dosage: AS NEEDED
     Route: 065

REACTIONS (1)
  - Renal cell carcinoma [Not Recovered/Not Resolved]

NARRATIVE: CASE EVENT DATE: 2019
